FAERS Safety Report 5196499-6 (Version None)
Quarter: 2006Q4

REPORT INFORMATION
  Report Type: 
  Country: None (occurrence: None)
  Receive Date: 20061227
  Receipt Date: 20061211
  Transmission Date: 20070319
  Serious: Yes (Other)
  Sender: FDA-Public Use
  Company Number: GXKR2006GB08120

PATIENT
  Age: 52 Year
  Sex: Female
  Weight: 47 kg

DRUGS (5)
  1. ASPIRIN [Suspect]
     Dosage: 75 MG, ORAL
     Route: 048
     Dates: start: 20061026, end: 20061120
  2. IVABRADINE (IVABRADINE) [Suspect]
     Indication: TACHYCARDIA
     Dosage: 5 MG, ORAL
     Route: 048
     Dates: start: 20061025, end: 20061120
  3. ESOMEPRAZOLE (ESOMEPRZOLE) [Concomitant]
  4. ESTRADERM [Concomitant]
  5. PROPRANOLOL [Concomitant]

REACTIONS (7)
  - DIZZINESS [None]
  - MALAISE [None]
  - PAIN [None]
  - PRURITUS [None]
  - RASH [None]
  - RASH MORBILLIFORM [None]
  - URTICARIA [None]
